FAERS Safety Report 20314827 (Version 1)
Quarter: 2022Q1

REPORT INFORMATION
  Report Type: Other
  Country: US (occurrence: None)
  Receive Date: 20220110
  Receipt Date: 20220110
  Transmission Date: 20220423
  Serious: No
  Sender: FDA-Public Use
  Company Number: US-ROCHE-2893524

PATIENT
  Age: 26 Year
  Sex: Female

DRUGS (3)
  1. RITUXIMAB [Suspect]
     Active Substance: RITUXIMAB
     Indication: Systemic lupus erythematosus
     Dosage: DAY 0 AND DAY 15
     Route: 041
  2. MYCOPHENOLATE MOFETIL [Suspect]
     Active Substance: MYCOPHENOLATE MOFETIL
     Indication: Systemic lupus erythematosus
     Route: 065
  3. PREDNISONE [Concomitant]
     Active Substance: PREDNISONE

REACTIONS (4)
  - Skin infection [Unknown]
  - Transaminases increased [Unknown]
  - Off label use [Unknown]
  - No adverse event [Unknown]
